FAERS Safety Report 21347760 (Version 2)
Quarter: 2023Q1

REPORT INFORMATION
  Report Type: Spontaneous
  Country: US (occurrence: US)
  Receive Date: 20220919
  Receipt Date: 20230109
  Transmission Date: 20230417
  Serious: Yes (Other)
  Sender: FDA-Public Use
  Company Number: US-BRISTOL-MYERS SQUIBB COMPANY-2022-107566

PATIENT
  Age: 71 Year
  Sex: Female

DRUGS (1)
  1. ELIQUIS [Suspect]
     Active Substance: APIXABAN
     Indication: Product used for unknown indication
     Route: 048

REACTIONS (3)
  - Breast cancer [Unknown]
  - Colon cancer [Unknown]
  - Thrombosis [Unknown]

NARRATIVE: CASE EVENT DATE: 20230106
